FAERS Safety Report 11730843 (Version 1)
Quarter: 2015Q4

REPORT INFORMATION
  Report Type: Spontaneous
  Country: US (occurrence: US)
  Receive Date: 20151110
  Receipt Date: 20151110
  Transmission Date: 20160304
  Serious: No
  Sender: FDA-Public Use
  Company Number: US-ELI_LILLY_AND_COMPANY-US201202005364

PATIENT
  Age: 66 Year
  Sex: Female

DRUGS (1)
  1. FORTEO [Suspect]
     Active Substance: TERIPARATIDE
     Indication: OSTEOPOROSIS
     Dosage: 20 UG, QD
     Route: 065
     Dates: start: 20120215

REACTIONS (8)
  - Dysgeusia [Recovering/Resolving]
  - Paraesthesia [Recovering/Resolving]
  - Head discomfort [Recovering/Resolving]
  - Feeling abnormal [Unknown]
  - Pruritus generalised [Recovering/Resolving]
  - Swelling face [Recovering/Resolving]
  - Fear [Unknown]
  - Insomnia [Unknown]

NARRATIVE: CASE EVENT DATE: 20120215
